FAERS Safety Report 8898090 (Version 1)
Quarter: 2012Q4

REPORT INFORMATION
  Report Type: 
  Country: US (occurrence: US)
  Receive Date: 20121108
  Receipt Date: 20121108
  Transmission Date: 20130627
  Serious: No
  Sender: FDA-Public Use
  Company Number: US-AMGEN-USASP2012030684

PATIENT
  Age: 71 Year
  Sex: Male
  Weight: 93.88 kg

DRUGS (12)
  1. ENBREL [Suspect]
     Indication: PRODUCT USED FOR UNKNOWN INDICATION
     Dosage: 50 mg, qwk
     Route: 058
  2. LEVOTHYROXIN [Concomitant]
     Dosage: 300 mug, UNK
  3. CITALOPRAM [Concomitant]
     Dosage: 10 mg, UNK
  4. ACETAMINOPHEN [Concomitant]
     Dosage: 325 mg, UNK
  5. METOPROLOL [Concomitant]
     Dosage: 25 mg, UNK
  6. METHOTREXATE [Concomitant]
     Dosage: 20 mg, UNK
  7. DIOVAN [Concomitant]
     Dosage: 320 mg, UNK
  8. PLAVIX [Concomitant]
     Dosage: 75 mg, UNK
  9. ECOTRIN [Concomitant]
     Dosage: 325 mg, UNK
  10. CRESTOR [Concomitant]
     Dosage: 10 mg, UNK
  11. MULTIVITAMIN                       /00097801/ [Concomitant]
  12. FISH OIL [Concomitant]

REACTIONS (1)
  - Arthritis [Unknown]
